FAERS Safety Report 10040002 (Version 2)
Quarter: 2014Q1

REPORT INFORMATION
  Report Type: Report from Study
  Country: CA (occurrence: CA)
  Receive Date: 20140326
  Receipt Date: 20140326
  Transmission Date: 20141002
  Serious: Yes (Hospitalization, Other)
  Sender: FDA-Public Use
  Company Number: CA-ABBVIE-13P-028-1089625-00

PATIENT
  Sex: Female

DRUGS (3)
  1. HUMIRA [Suspect]
     Indication: CROHN^S DISEASE
     Route: 058
     Dates: start: 20130410, end: 201311
  2. HUMIRA [Suspect]
     Route: 058
     Dates: start: 201311, end: 20140121
  3. PREDNISONE [Concomitant]
     Indication: CROHN^S DISEASE

REACTIONS (6)
  - Large intestinal ulcer [Recovered/Resolved]
  - Drug ineffective [Not Recovered/Not Resolved]
  - Crohn^s disease [Recovering/Resolving]
  - Abdominal pain [Recovering/Resolving]
  - Gastrointestinal inflammation [Recovered/Resolved]
  - C-reactive protein increased [Recovered/Resolved]
